FAERS Safety Report 4802626-X (Version None)
Quarter: 2005Q4

REPORT INFORMATION
  Report Type: 
  Country: None (occurrence: None)
  Receive Date: 20051014
  Receipt Date: 20050407
  Transmission Date: 20060501
  Serious: Yes (Other)
  Sender: FDA-Public Use
  Company Number: 2005057116

PATIENT
  Sex: Female
  Weight: 86.1834 kg

DRUGS (1)
  1. NEURONTIN [Suspect]
     Indication: DEPRESSION
     Dosage: 1800 MG (600 MG, 3 IN 1 D), ORAL
     Route: 048

REACTIONS (1)
  - SUICIDE ATTEMPT [None]
